FAERS Safety Report 9061235 (Version 1)
Quarter: 2013Q1

REPORT INFORMATION
  Report Type: Spontaneous
  Country: US (occurrence: None)
  Receive Date: 20130207
  Receipt Date: 20130207
  Transmission Date: 20140127
  Serious: Yes (Hospitalization, Disabling)
  Sender: FDA-Public Use
  Company Number: None

PATIENT
  Age: 87 Year
  Sex: Female
  Weight: 47.63 kg

DRUGS (1)
  1. PROLIA [Suspect]

REACTIONS (13)
  - Arthralgia [None]
  - Influenza like illness [None]
  - Vomiting [None]
  - Chills [None]
  - Drug ineffective [None]
  - Pain in jaw [None]
  - Stomatitis [None]
  - Cheilitis [None]
  - Neck pain [None]
  - Myalgia [None]
  - Pyrexia [None]
  - Abasia [None]
  - Bedridden [None]
